FAERS Safety Report 12369361 (Version 2)
Quarter: 2016Q2

REPORT INFORMATION
  Report Type: Spontaneous
  Country: CN (occurrence: CN)
  Receive Date: 20160513
  Receipt Date: 20160517
  Transmission Date: 20160815
  Serious: Yes (Death)
  Sender: FDA-Public Use
  Company Number: CN-BAYER-2016-090680

PATIENT
  Age: 53 Year
  Sex: Male

DRUGS (1)
  1. ULTRAVIST [Suspect]
     Active Substance: IOPROMIDE
     Indication: COMPUTERISED TOMOGRAM
     Dosage: 65 ML, ONCE, 0.3ML/SEC
     Route: 042
     Dates: start: 20160510, end: 20160510

REACTIONS (3)
  - Seizure [Fatal]
  - Sputum discoloured [Fatal]
  - Cyanosis [Fatal]

NARRATIVE: CASE EVENT DATE: 20160510
